FAERS Safety Report 8925967 (Version 1)
Quarter: 2012Q4

REPORT INFORMATION
  Report Type: 
  Country: GB (occurrence: GB)
  Receive Date: 20121126
  Receipt Date: 20121126
  Transmission Date: 20130627
  Serious: Yes (Disabling, Other)
  Sender: FDA-Public Use
  Company Number: PHFR2012GB006045

PATIENT
  Age: 58 Year

DRUGS (6)
  1. LETROZOLE [Suspect]
  2. AMLODIPINE [Concomitant]
  3. BENDROFLUMETHIAZIDE [Concomitant]
  4. IRBESARTAN [Concomitant]
  5. SIMVASTATIN [Concomitant]
  6. SALBUTAMOL [Concomitant]

REACTIONS (2)
  - Arthralgia [Recovered/Resolved]
  - Median nerve injury [Unknown]
